FAERS Safety Report 9960139 (Version 2)
Quarter: 2014Q1

REPORT INFORMATION
  Report Type: Report from Study
  Country: PR (occurrence: PR)
  Receive Date: 20140305
  Receipt Date: 20140305
  Transmission Date: 20141002
  Serious: No
  Sender: FDA-Public Use
  Company Number: PR-ABBVIE-13P-131-1047499-00

PATIENT
  Sex: Female
  Weight: 71.73 kg

DRUGS (7)
  1. HUMIRA [Suspect]
     Indication: PRODUCT USED FOR UNKNOWN INDICATION
     Route: 058
     Dates: start: 2011, end: 201302
  2. HUMIRA [Suspect]
     Route: 058
     Dates: start: 201302
  3. METHOTREXATE [Concomitant]
     Indication: RHEUMATOID ARTHRITIS
     Dosage: 6 EVERY FRIDAY
     Route: 048
  4. PREDNISONE [Concomitant]
     Indication: RHEUMATOID ARTHRITIS
     Route: 048
  5. FOLIC ACID [Concomitant]
     Indication: RHEUMATOID ARTHRITIS
     Route: 048
  6. VITAMIN D [Concomitant]
     Route: 048
  7. VASOTEC [Concomitant]
     Indication: HYPERTENSION
     Route: 048

REACTIONS (1)
  - Nasopharyngitis [Recovered/Resolved]
